FAERS Safety Report 16331376 (Version 2)
Quarter: 2020Q2

REPORT INFORMATION
  Report Type: Report from Study
  Country: US (occurrence: US)
  Receive Date: 20190520
  Receipt Date: 20200513
  Transmission Date: 20200713
  Serious: No
  Sender: FDA-Public Use
  Company Number: US-ACADIA PHARMACEUTICALS INC.-ACA-2019-011733

PATIENT
  Age: 75 Year
  Sex: Male

DRUGS (5)
  1. NUPLAZID [Suspect]
     Active Substance: PIMAVANSERIN TARTRATE
     Indication: DELUSION
     Dosage: 34 MG, QD
     Route: 048
     Dates: start: 2019, end: 2019
  2. NUPLAZID [Suspect]
     Active Substance: PIMAVANSERIN TARTRATE
     Indication: PARKINSON^S DISEASE
     Dosage: 34 MG, QD
     Route: 048
     Dates: start: 20190119, end: 2019
  3. NUPLAZID [Suspect]
     Active Substance: PIMAVANSERIN TARTRATE
     Indication: PARKINSON^S DISEASE PSYCHOSIS
  4. NUPLAZID [Suspect]
     Active Substance: PIMAVANSERIN TARTRATE
     Indication: PARKINSON^S DISEASE
     Dosage: 20 MG, QD
     Route: 048
     Dates: start: 2019
  5. NUPLAZID [Suspect]
     Active Substance: PIMAVANSERIN TARTRATE
     Indication: HALLUCINATION
     Dosage: 34 MG, QD
     Route: 048
     Dates: start: 201902, end: 2019

REACTIONS (10)
  - Drooling [Not Recovered/Not Resolved]
  - Hallucination [Recovering/Resolving]
  - Anal incontinence [Unknown]
  - Confusional state [Not Recovered/Not Resolved]
  - Fall [Unknown]
  - Prescribed underdose [Unknown]
  - Urinary incontinence [Unknown]
  - Delusion [Not Recovered/Not Resolved]
  - Drug intolerance [Unknown]
  - Depressed mood [Unknown]

NARRATIVE: CASE EVENT DATE: 2019
